FAERS Safety Report 19812685 (Version 2)
Quarter: 2021Q4

REPORT INFORMATION
  Report Type: Spontaneous
  Country: CO (occurrence: CO)
  Receive Date: 20210910
  Receipt Date: 20211012
  Transmission Date: 20220303
  Serious: Yes (Other)
  Sender: FDA-Public Use
  Company Number: CO-PFIZER INC-202101133939

PATIENT
  Age: 57 Year
  Sex: Female

DRUGS (1)
  1. ENBREL [Suspect]
     Active Substance: ETANERCEPT
     Indication: Product used for unknown indication
     Dosage: 50 MG, WEEKLY (EVERY 8 DAYS)
     Route: 058
     Dates: start: 2015, end: 20210817

REACTIONS (5)
  - Mobility decreased [Unknown]
  - Feeding disorder [Unknown]
  - Vomiting [Unknown]
  - Intentional product misuse [Unknown]
  - Pyrexia [Unknown]

NARRATIVE: CASE EVENT DATE: 20210817
